FAERS Safety Report 9965624 (Version 1)
Quarter: 2014Q1

REPORT INFORMATION
  Report Type: Report from Study
  Country: US (occurrence: US)
  Receive Date: 20140305
  Receipt Date: 20140305
  Transmission Date: 20141002
  Serious: No
  Sender: FDA-Public Use
  Company Number: US-ABBVIE-13P-163-1126938-00

PATIENT
  Age: 36 Year
  Sex: Female

DRUGS (9)
  1. HUMIRA [Suspect]
     Indication: RHEUMATOID ARTHRITIS
     Route: 058
     Dates: start: 20130605, end: 20130703
  2. METHOTREXATE [Concomitant]
     Indication: RHEUMATOID ARTHRITIS
  3. CITALOPRAM [Concomitant]
     Indication: AFFECTIVE DISORDER
     Dosage: 20MG DAILY
  4. MELAXOCAM [Concomitant]
     Indication: RHEUMATOID ARTHRITIS
     Dosage: 75MG DAILY
  5. FOLIC ACID [Concomitant]
     Indication: VITAMIN SUPPLEMENTATION
     Dosage: 1MG DAILY
  6. PREDNISONE [Concomitant]
     Indication: RHEUMATOID ARTHRITIS
     Dosage: 1MG DAILY
  7. HYDROCODONE [Concomitant]
     Indication: RHEUMATOID ARTHRITIS
     Dosage: 5/500MG
  8. HYDROCODONE [Concomitant]
     Indication: HEADACHE
  9. LEVONOR [Concomitant]
     Indication: CONTRACEPTION
     Dosage: DAILY

REACTIONS (8)
  - Arthropod bite [Recovering/Resolving]
  - Injection site bruising [Recovering/Resolving]
  - Urticaria [Recovering/Resolving]
  - Nausea [Unknown]
  - Sinusitis [Unknown]
  - Nasal congestion [Unknown]
  - Headache [Unknown]
  - Sputum discoloured [Unknown]
